FAERS Safety Report 24053462 (Version 1)
Quarter: 2024Q3

REPORT INFORMATION
  Report Type: Report from Study
  Country: US (occurrence: US)
  Receive Date: 20240705
  Receipt Date: 20240705
  Transmission Date: 20241016
  Serious: Yes (Death, Other)
  Sender: TAKEDA
  Company Number: US-TAKEDA-2024TUS067602

PATIENT
  Age: 53 Year
  Sex: Male
  Weight: 71 kg

DRUGS (2)
  1. FRUQUINTINIB [Suspect]
     Active Substance: FRUQUINTINIB
     Indication: Rectal cancer stage IV
     Dosage: 5 MILLIGRAM
     Route: 065
  2. MORPHINE [Concomitant]
     Active Substance: MORPHINE
     Indication: Pain

REACTIONS (2)
  - Rectal cancer stage IV [Fatal]
  - Rectal cancer metastatic [Unknown]

NARRATIVE: CASE EVENT DATE: 20231201
